FAERS Safety Report 15441268 (Version 1)
Quarter: 2018Q4

REPORT INFORMATION
  Report Type: Report from Study
  Country: ES (occurrence: ES)
  Receive Date: 20180928
  Receipt Date: 20180928
  Transmission Date: 20190204
  Serious: Yes (Hospitalization)
  Sender: FDA-Public Use
  Company Number: ES-TEVA-2018-ES-959401

PATIENT
  Age: 63 Year
  Sex: Female

DRUGS (6)
  1. OLMESART?N + AMLODIPINO + HIDROCLOROTIAZIDA [Interacting]
     Active Substance: AMLODIPINE\HYDROCHLOROTHIAZIDE\OLMESARTAN
     Indication: HYPERTENSION
     Dosage: 1 DOSAGE FORMS DAILY;
     Route: 048
     Dates: start: 20161019, end: 20180109
  2. CARVEDILOL (2431A) [Concomitant]
     Active Substance: CARVEDILOL
     Indication: HYPERTENSION
     Dosage: 13 MILLIGRAM DAILY;
     Route: 048
     Dates: start: 20110711, end: 20180110
  3. IBUPROFENO (1769A) [Suspect]
     Active Substance: IBUPROFEN
     Dosage: 3 DOSAGE FORMS DAILY;
     Route: 048
     Dates: start: 20180101, end: 20180109
  4. GLICLAZIDA (1657A) [Concomitant]
     Indication: DIABETES MELLITUS
     Dosage: 90 MILLIGRAM DAILY;
     Route: 048
     Dates: start: 20050805, end: 20180110
  5. FUROSEMIDA (1615A) [Interacting]
     Active Substance: FUROSEMIDE
     Indication: HYPERTENSION
     Dosage: 80 MILLIGRAM DAILY;
     Route: 048
     Dates: start: 20120327, end: 20180109
  6. METFORMINA (1359A) [Concomitant]
     Active Substance: METFORMIN HYDROCHLORIDE
     Indication: DIABETES MELLITUS
     Dosage: 2.55 GRAM DAILY;
     Route: 048
     Dates: start: 20050805, end: 20180110

REACTIONS (3)
  - Drug interaction [Unknown]
  - Hyperkalaemia [Recovered/Resolved]
  - Acute kidney injury [Not Recovered/Not Resolved]

NARRATIVE: CASE EVENT DATE: 20180109
